FAERS Safety Report 11619509 (Version 2)
Quarter: 2017Q1

REPORT INFORMATION
  Report Type: Spontaneous
  Country: US (occurrence: US)
  Receive Date: 20151012
  Receipt Date: 20170307
  Transmission Date: 20170428
  Serious: Yes (Other)
  Sender: FDA-Public Use
  Company Number: US-TEVA-599864USA

PATIENT
  Sex: Female

DRUGS (4)
  1. COPAXONE [Suspect]
     Active Substance: GLATIRAMER ACETATE
     Dosage: UNKNOWN FORM STRENGTH
     Route: 065
  2. BETASERON [Concomitant]
     Active Substance: INTERFERON BETA-1B
  3. LEMTRADA [Concomitant]
     Active Substance: ALEMTUZUMAB
  4. ACTHAR [Concomitant]
     Active Substance: CORTICOTROPIN

REACTIONS (4)
  - Exposure during pregnancy [Unknown]
  - Live birth [Unknown]
  - Skin reaction [Unknown]
  - Caesarean section [Unknown]
